FAERS Safety Report 6202827-2 (Version None)
Quarter: 2009Q2

REPORT INFORMATION
  Report Type: 
  Country: None (occurrence: None)
  Receive Date: 20090520
  Receipt Date: 20090511
  Transmission Date: 20091009
  Serious: Yes (Hospitalization, Other)
  Sender: FDA-Public Use
  Company Number: GXKR2009AU05721

PATIENT
  Age: 75 Year
  Sex: Male

DRUGS (10)
  1. SIMVASTATIN [Suspect]
  2. PLAVIX [Suspect]
     Dosage: ORAL
     Route: 048
     Dates: start: 20060901
  3. FRUSEMIDE (FUROSEMIDE) [Suspect]
  4. DIGESIC (DEXTROPROPOXYPHENE, PARACETAMOL) [Concomitant]
  5. MULTI-VITAMINS [Concomitant]
  6. POTASSIUM CHLORIDE [Concomitant]
  7. NEXIUM [Concomitant]
  8. MONODUR (ISOSORBIDE MONONITRATE) [Concomitant]
  9. PEXSIG (PERHEXILINE MALEATE) [Concomitant]
  10. FOSAMAX [Concomitant]

REACTIONS (4)
  - DIZZINESS [None]
  - FALL [None]
  - LOSS OF CONSCIOUSNESS [None]
  - ROAD TRAFFIC ACCIDENT [None]
